FAERS Safety Report 4375701-4 (Version None)
Quarter: 2004Q2

REPORT INFORMATION
  Report Type: 
  Country: None (occurrence: None)
  Receive Date: 20040608
  Receipt Date: 20030321
  Transmission Date: 20050107
  Serious: Yes (Other)
  Sender: FDA-Public Use
  Company Number: 200310149BCC

PATIENT
  Age: 70 Year
  Sex: Male

DRUGS (8)
  1. ALEVE [Suspect]
     Dosage: 440 MG, QD, ORAL
     Route: 048
     Dates: start: 20020701
  2. TUSSIONEX [Suspect]
     Dosage: ORAL
     Route: 048
  3. LOPID [Concomitant]
  4. COZAAR [Concomitant]
  5. FELODIPINE [Concomitant]
  6. LASIX [Concomitant]
  7. COREG [Concomitant]
  8. 325 MG ENTERIC ASPIRIN [Concomitant]

REACTIONS (1)
  - GASTRIC ULCER HAEMORRHAGE [None]
